FAERS Safety Report 9693824 (Version 1)
Quarter: 2013Q4

REPORT INFORMATION
  Report Type: Spontaneous
  Country: FR (occurrence: FR)
  Receive Date: 20131118
  Receipt Date: 20131118
  Transmission Date: 20140711
  Serious: Yes (Life-Threatening, Hospitalization)
  Sender: FDA-Public Use
  Company Number: PHHY2013FR130677

PATIENT
  Age: 60 Year
  Sex: Male

DRUGS (6)
  1. TEGRETOL-XR [Suspect]
     Indication: EPILEPSY
     Dosage: 1 DF, BID
     Route: 048
     Dates: start: 19820626
  2. ZONEGRAN [Suspect]
     Indication: EPILEPSY
     Dosage: 1 DF, BID
     Route: 048
     Dates: start: 20121018, end: 20130105
  3. COKENZEN [Suspect]
     Dosage: 1 DF, QD
  4. SERETIDE DISCUS [Suspect]
     Dosage: 1 DF, BID
  5. TAHOR [Concomitant]
     Dosage: 1 DF, QD
  6. RHINOCORT (BUDESONIDE) [Concomitant]
     Dosage: UNK UKN, UNK

REACTIONS (3)
  - Hypokalaemia [Recovered/Resolved]
  - Acute coronary syndrome [Recovered/Resolved]
  - Chest pain [Recovered/Resolved]
